FAERS Safety Report 8970929 (Version 1)
Quarter: 2012Q4

REPORT INFORMATION
  Report Type: 
  Country: US (occurrence: US)
  Receive Date: 20121218
  Receipt Date: 20121218
  Transmission Date: 20130627
  Serious: Yes (Other)
  Sender: FDA-Public Use
  Company Number: US-PFIZER INC-2012315347

PATIENT
  Age: 56 Year
  Sex: Female
  Weight: 117.9 kg

DRUGS (3)
  1. ADVIL COLD AND SINUS [Suspect]
     Indication: SINUS INFECTION
     Dosage: UNK
     Route: 048
     Dates: start: 20121207, end: 20121212
  2. ADVAIR DISKUS [Concomitant]
     Indication: ASTHMA
     Dosage: 500/50 mg, 2x/day
  3. AUGMENTIN [Concomitant]
     Dosage: UNK

REACTIONS (5)
  - Exophthalmos [Unknown]
  - Sinus headache [Unknown]
  - Agitation [Unknown]
  - Panic reaction [Unknown]
  - Sinus congestion [Unknown]
